FAERS Safety Report 5812383-6 (Version None)
Quarter: 2008Q3

REPORT INFORMATION
  Report Type: 
  Country: None (occurrence: None)
  Receive Date: 20080711
  Receipt Date: 20080701
  Transmission Date: 20090109
  Serious: Yes (Death)
  Sender: FDA-Public Use
  Company Number: OMPQ-NO-0807S-0432

PATIENT
  Age: 54 Year
  Sex: Female
  Weight: 128 kg

DRUGS (2)
  1. OMNIPAQUE 140 [Suspect]
     Indication: DRUG USE FOR UNKNOWN INDICATION
     Dosage: 100 ML, SINGLE DOSE, I.V.
     Route: 042
     Dates: start: 20080630, end: 20080630
  2. OMNIPAQUE 140 [Suspect]

REACTIONS (1)
  - PULMONARY EMBOLISM [None]
